FAERS Safety Report 25231651 (Version 1)
Quarter: 2025Q2

REPORT INFORMATION
  Report Type: Spontaneous
  Country: FR (occurrence: FR)
  Receive Date: 20250423
  Receipt Date: 20250423
  Transmission Date: 20250716
  Serious: Yes (Hospitalization)
  Sender: TEVA
  Company Number: None

PATIENT
  Age: 69 Year
  Sex: Male
  Weight: 68 kg

DRUGS (5)
  1. INDAPAMIDE [Suspect]
     Active Substance: INDAPAMIDE
     Indication: Hypertension
     Route: 048
     Dates: end: 20250320
  2. ALFUZOSIN [Concomitant]
     Active Substance: ALFUZOSIN
     Indication: Urogenital disorder
     Dosage: XATRAL LP
     Route: 048
  3. IBUPROFEN [Suspect]
     Active Substance: IBUPROFEN
     Indication: Arthralgia
     Route: 048
     Dates: start: 202409, end: 202503
  4. KETOPROFEN [Suspect]
     Active Substance: KETOPROFEN
     Indication: Arthralgia
     Route: 048
     Dates: start: 202409, end: 202503
  5. RAMIPRIL [Suspect]
     Active Substance: RAMIPRIL
     Indication: Hypertension
     Route: 048
     Dates: end: 20250320

REACTIONS (1)
  - Acute kidney injury [Recovering/Resolving]

NARRATIVE: CASE EVENT DATE: 20250319
